FAERS Safety Report 5722180-8 (Version None)
Quarter: 2008Q2

REPORT INFORMATION
  Report Type: 
  Country: None (occurrence: None)
  Receive Date: 20080425
  Receipt Date: 20080414
  Transmission Date: 20081010
  Serious: Yes (Other)
  Sender: FDA-Public Use
  Company Number: 163-21880-08041098

PATIENT
  Age: 66 Year
  Sex: Female

DRUGS (21)
  1. REVLIMID [Suspect]
     Indication: MULTIPLE MYELOMA
     Dosage: 25 MG, DAILY X 3 WEEKS, THEN SKIP A WEEK, ORAL
     Route: 048
     Dates: start: 20071205, end: 20080321
  2. DECADRON [Concomitant]
  3. ZOCOR [Concomitant]
  4. CELEBREX [Concomitant]
  5. PRILOSEC [Concomitant]
  6. METFORMIN HCL [Concomitant]
  7. LOTREL [Concomitant]
  8. ZYRTEC [Concomitant]
  9. MACROBID [Concomitant]
  10. BENICAR HCT (BENICAR HCT) [Concomitant]
  11. ZOLOFT [Concomitant]
  12. AVANDIA [Concomitant]
  13. GABAPENTIN [Concomitant]
  14. POTASSIUM CHLORIDE [Concomitant]
  15. CALCIUM + D (CALCITE D) [Concomitant]
  16. VERAMYST (FLUTICASONE PROPIONATE) [Concomitant]
  17. ATIVAN [Concomitant]
  18. ANTIVERT (MECLOZINE HYDROCHLORIDE) [Concomitant]
  19. COMPAZINE [Concomitant]
  20. ASTELIN [Concomitant]
  21. B I2 (CYANOCOBALAMIN) [Concomitant]

REACTIONS (2)
  - CONVULSION [None]
  - PANCYTOPENIA [None]
